FAERS Safety Report 4736923-3 (Version None)
Quarter: 2005Q3

REPORT INFORMATION
  Report Type: 
  Country: None (occurrence: None)
  Receive Date: 20050808
  Receipt Date: 20050301
  Transmission Date: 20060218
  Serious: Yes (Hospitalization)
  Sender: FDA-Public Use
  Company Number: FR-ROCHE-397085

PATIENT
  Age: 60 Year
  Sex: Male

DRUGS (17)
  1. VALGANCICLOVIR [Suspect]
     Indication: DRUG USE FOR UNKNOWN INDICATION
     Route: 065
     Dates: start: 20040728, end: 20041001
  2. MYCOPHENOLATE MOFETIL [Suspect]
     Route: 065
     Dates: start: 20040727, end: 20040809
  3. MYCOPHENOLATE MOFETIL [Suspect]
     Route: 065
     Dates: start: 20040810, end: 20041214
  4. MYCOPHENOLATE MOFETIL [Suspect]
     Route: 065
     Dates: start: 20041215, end: 20050126
  5. MYCOPHENOLATE MOFETIL [Suspect]
     Route: 065
     Dates: start: 20050127
  6. CYCLOSPORINE [Suspect]
     Dosage: DOSE ADJUSTED TO REACH PREDEFINED TARGET LEVELS
     Route: 065
     Dates: start: 20040728
  7. METHYLPREDNISOLONE 16MG TAB [Suspect]
     Route: 065
     Dates: start: 20040726, end: 20040726
  8. PREDNISOLONE [Suspect]
     Dosage: DOSE TAPERED ACCORDING TO LOCAL PROTOCOL
     Route: 065
     Dates: start: 20040727, end: 20041207
  9. PREDNISOLONE [Suspect]
     Dosage: DOSE CHANGED DUE TO ADVERSE EVENT
     Route: 065
     Dates: start: 20041208, end: 20050202
  10. PREDNISOLONE [Suspect]
     Dosage: DOSE TAPERED ACCORDING TO LOCAL PROTOCOL.
     Route: 065
     Dates: start: 20050203
  11. BACTRIM [Concomitant]
     Dosage: STOPPED ON 23 SEPTEMBER 2004 AND RESTARTED ON 03 FEBRUARY 2005.
     Dates: start: 20040730, end: 20050429
  12. FELODIPINE [Concomitant]
     Dates: start: 20040728, end: 20041021
  13. EPOETIN BETA [Concomitant]
     Dates: start: 20040728, end: 20040806
  14. VALSARTAN [Concomitant]
     Dates: start: 20040831, end: 20040902
  15. BISOPROLOL [Concomitant]
     Dates: start: 20040906
  16. RILMENIDINE [Concomitant]
     Dates: start: 20041029, end: 20050318
  17. HYDROCHLOROTHIAZIDE [Concomitant]
     Dates: start: 20041029, end: 20041107

REACTIONS (2)
  - AGRANULOCYTOSIS [None]
  - CYTOMEGALOVIRUS INFECTION [None]
